FAERS Safety Report 10343100 (Version 1)
Quarter: 2014Q3

REPORT INFORMATION
  Report Type: Spontaneous
  Country: US (occurrence: US)
  Receive Date: 20140725
  Receipt Date: 20140725
  Transmission Date: 20150326
  Serious: Yes (Hospitalization, Other)
  Sender: FDA-Public Use
  Company Number: US-BRISTOL-MYERS SQUIBB COMPANY-21214630

PATIENT
  Age: 72 Year
  Sex: Female
  Weight: 88.43 kg

DRUGS (5)
  1. TRAMADOL [Concomitant]
     Active Substance: TRAMADOL
     Indication: PAIN
  2. COUMADIN [Suspect]
     Active Substance: WARFARIN SODIUM
     Indication: PALPITATIONS
     Dosage: 1DF=2 UNITS NOS
     Dates: start: 2007
  3. SIMVASTATIN. [Concomitant]
     Active Substance: SIMVASTATIN
  4. COUMADIN [Suspect]
     Active Substance: WARFARIN SODIUM
     Indication: ATRIAL FIBRILLATION
     Dosage: 1DF=2 UNITS NOS
     Dates: start: 2007
  5. DILTIAZEM HCL [Concomitant]
     Active Substance: DILTIAZEM HYDROCHLORIDE
     Indication: ARRHYTHMIA

REACTIONS (5)
  - Blindness unilateral [Unknown]
  - Weight decreased [Unknown]
  - Pain in extremity [Unknown]
  - Carotid artery occlusion [Unknown]
  - Skin discolouration [Unknown]
